FAERS Safety Report 7250114-6 (Version None)
Quarter: 2011Q1

REPORT INFORMATION
  Report Type: 
  Country: None (occurrence: None)
  Receive Date: 20110128
  Receipt Date: 20110104
  Transmission Date: 20110831
  Serious: Yes (Other)
  Sender: FDA-Public Use
  Company Number: US-BAYER-2011-001535

PATIENT
  Sex: Female

DRUGS (2)
  1. MIRENA [Suspect]
     Indication: PRODUCT USED FOR UNKNOWN INDICATION
     Dosage: 20 ?G, CONT
  2. MIRENA [Suspect]
     Dosage: 20 ?G, CONT

REACTIONS (2)
  - BLADDER NECK SUSPENSION [None]
  - DEVICE DIFFICULT TO USE [None]
